FAERS Safety Report 7340509-4 (Version None)
Quarter: 2011Q1

REPORT INFORMATION
  Report Type: 
  Country: None (occurrence: None)
  Receive Date: 20110309
  Receipt Date: 20110223
  Transmission Date: 20110831
  Serious: Yes (Other)
  Sender: FDA-Public Use
  Company Number: PHHY2011FR16386

PATIENT
  Age: 60 Year
  Sex: Female

DRUGS (4)
  1. ACLASTA [Suspect]
     Indication: OSTEOPOROSIS
     Dosage: 5 MG,
     Dates: start: 20110113
  2. VOLTAREN [Concomitant]
  3. CORTICOSTEROIDS [Suspect]
     Indication: SPONDYLITIS
     Dosage: UNK
     Dates: start: 20110113
  4. ENBREL [Concomitant]

REACTIONS (6)
  - TINNITUS [None]
  - DIZZINESS [None]
  - C-REACTIVE PROTEIN DECREASED [None]
  - HEADACHE [None]
  - VOMITING [None]
  - RED BLOOD CELL SEDIMENTATION RATE DECREASED [None]
